FAERS Safety Report 4594473-1 (Version None)
Quarter: 2005Q1

REPORT INFORMATION
  Report Type: 
  Country: None (occurrence: None)
  Receive Date: 20050301
  Receipt Date: 20040317
  Transmission Date: 20050727
  Serious: No
  Sender: FDA-Public Use
  Company Number: US-GLAXOSMITHKLINE-A0503226A

PATIENT
  Age: 31 Year
  Sex: Female

DRUGS (4)
  1. VALTREX [Suspect]
     Dosage: 500MG TWICE PER DAY
     Route: 048
  2. NEURONTIN [Concomitant]
  3. CELEXA [Concomitant]
  4. IBUPROFEN [Concomitant]

REACTIONS (1)
  - HERPES SIMPLEX [None]
